FAERS Safety Report 8819790 (Version 2)
Quarter: 2014Q3

REPORT INFORMATION
  Report Type: Report from Study
  Country: US (occurrence: US)
  Receive Date: 20121001
  Receipt Date: 20140822
  Transmission Date: 20150326
  Serious: Yes (Other)
  Sender: FDA-Public Use
  Company Number: US-ROCHE-1137146

PATIENT
  Sex: Female

DRUGS (13)
  1. DESYREL [Concomitant]
     Active Substance: TRAZODONE HYDROCHLORIDE
  2. TAXOTERE [Concomitant]
     Active Substance: DOCETAXEL
  3. PREVACID [Concomitant]
     Active Substance: LANSOPRAZOLE
  4. HERCEPTIN [Suspect]
     Active Substance: TRASTUZUMAB
     Indication: BREAST CANCER FEMALE
     Dosage: MAINTENANCE DOSE
     Route: 042
  5. ALDACTONE (UNITED STATES) [Concomitant]
  6. AROMASIN [Concomitant]
     Active Substance: EXEMESTANE
  7. TAMOXIFEN [Concomitant]
     Active Substance: TAMOXIFEN
  8. AREDIA [Concomitant]
     Active Substance: PAMIDRONATE DISODIUM
  9. HERCEPTIN [Suspect]
     Active Substance: TRASTUZUMAB
     Indication: BREAST CANCER
     Dosage: LOADING DOSE
     Route: 042
     Dates: start: 19990927
  10. PRINIVIL [Concomitant]
     Active Substance: LISINOPRIL
  11. COUMADIN [Concomitant]
     Active Substance: WARFARIN SODIUM
  12. EPOETIN ALFA [Concomitant]
     Active Substance: ERYTHROPOIETIN
     Route: 065
  13. EPOETIN ALFA [Concomitant]
     Active Substance: ERYTHROPOIETIN
     Dosage: INCREASED
     Route: 065

REACTIONS (17)
  - Myalgia [Unknown]
  - Dysphonia [Unknown]
  - Cough [Unknown]
  - Blood urine present [Unknown]
  - Oedema [Unknown]
  - Pyrexia [Unknown]
  - Poor quality sleep [Unknown]
  - Hot flush [Unknown]
  - Pleural effusion [Unknown]
  - Fatigue [Unknown]
  - Diarrhoea [Unknown]
  - Nausea [Unknown]
  - Epistaxis [Unknown]
  - Cardiac failure congestive [Unknown]
  - Herpes zoster [Unknown]
  - Nasal congestion [Unknown]
  - Nasopharyngitis [Unknown]
